FAERS Safety Report 8274288-3 (Version None)
Quarter: 2012Q2

REPORT INFORMATION
  Report Type: 
  Country: None (occurrence: None)
  Receive Date: 20120411
  Receipt Date: 20120411
  Transmission Date: 20120825
  Serious: Yes (Life-Threatening, Hospitalization)
  Sender: FDA-Public Use
  Company Number: None

PATIENT
  Age: 23 Year
  Sex: Female
  Weight: 62.142 kg

DRUGS (1)
  1. CYMBALTA [Suspect]
     Indication: PAIN
     Dosage: 30MG
     Route: 048
     Dates: start: 20120216, end: 20120218

REACTIONS (12)
  - VERTIGO [None]
  - FALL [None]
  - CONFUSIONAL STATE [None]
  - EYE DISORDER [None]
  - CONCUSSION [None]
  - MOVEMENT DISORDER [None]
  - LOSS OF CONSCIOUSNESS [None]
  - HEAD INJURY [None]
  - HEADACHE [None]
  - CARDIAC DISORDER [None]
  - BLOOD PRESSURE DECREASED [None]
  - SYNCOPE [None]
